FAERS Safety Report 4279717-8 (Version None)
Quarter: 2004Q1

REPORT INFORMATION
  Report Type: 
  Country: None (occurrence: None)
  Receive Date: 20040127
  Receipt Date: 20040116
  Transmission Date: 20041129
  Serious: Yes (Death)
  Sender: FDA-Public Use
  Company Number: WAES 0401USA01531

PATIENT
  Sex: Female

DRUGS (4)
  1. [THERAPY UNSPECIFIED] [Concomitant]
  2. CIPROXAN [Concomitant]
  3. PEPCID [Suspect]
     Route: 042
     Dates: end: 20040116
  4. TARGOSID [Concomitant]

REACTIONS (2)
  - BLOOD PROLACTIN INCREASED [None]
  - DEATH [None]
